FAERS Safety Report 14511965 (Version 3)
Quarter: 2018Q2

REPORT INFORMATION
  Report Type: Report from Study
  Country: US (occurrence: US)
  Receive Date: 20180209
  Receipt Date: 20180507
  Transmission Date: 20180711
  Serious: Yes (Hospitalization, Other)
  Sender: FDA-Public Use
  Company Number: US-JNJFOC-20171010052

PATIENT
  Age: 62 Year
  Sex: Male

DRUGS (7)
  1. VITAMIN D [Concomitant]
     Active Substance: CHOLECALCIFEROL
  2. FAMCICLOVIR. [Concomitant]
     Active Substance: FAMCICLOVIR
  3. TRAZODONE [Concomitant]
     Active Substance: TRAZODONE HYDROCHLORIDE
  4. ALLOPURINOL. [Concomitant]
     Active Substance: ALLOPURINOL
  5. MELATONIN [Concomitant]
     Active Substance: MELATONIN
  6. ATIVAN [Concomitant]
     Active Substance: LORAZEPAM
  7. IMBRUVICA [Suspect]
     Active Substance: IBRUTINIB
     Indication: CHRONIC LYMPHOCYTIC LEUKAEMIA
     Route: 048
     Dates: start: 20170929

REACTIONS (16)
  - Haematoma [Recovered/Resolved]
  - Back pain [Recovered/Resolved]
  - Petechiae [Recovered/Resolved]
  - Abdominal discomfort [Unknown]
  - Myalgia [Not Recovered/Not Resolved]
  - Fall [Recovered/Resolved]
  - Dry skin [Unknown]
  - Dyspepsia [Unknown]
  - Scab [Recovered/Resolved]
  - Nausea [Recovered/Resolved]
  - Stomatitis [Unknown]
  - Angina bullosa haemorrhagica [Unknown]
  - Paraesthesia [Unknown]
  - Pain in extremity [Not Recovered/Not Resolved]
  - Pneumonia [Recovered/Resolved]
  - Fatigue [Unknown]

NARRATIVE: CASE EVENT DATE: 20170929
